FAERS Safety Report 9161121 (Version 1)
Quarter: 2013Q1

REPORT INFORMATION
  Report Type: Spontaneous
  Country: BR (occurrence: BR)
  Receive Date: 20130313
  Receipt Date: 20130313
  Transmission Date: 20140127
  Serious: Yes (Hospitalization)
  Sender: FDA-Public Use
  Company Number: PHHY2013BR023719

PATIENT
  Sex: Male

DRUGS (2)
  1. GALVUS MET [Suspect]
     Indication: CARDIAC DISORDER
     Dosage: 1 DF, BID (850 MG OF MET/50 MG OF VILD)
     Dates: start: 201004
  2. METFORMIN [Suspect]
     Indication: CARDIAC DISORDER
     Dosage: 1 DF, BID
     Dates: start: 201004

REACTIONS (1)
  - Cerebrovascular accident [Unknown]
